FAERS Safety Report 24916103 (Version 1)
Quarter: 2025Q1

REPORT INFORMATION
  Report Type: Spontaneous
  Country: IE (occurrence: IE)
  Receive Date: 20250203
  Receipt Date: 20250203
  Transmission Date: 20250409
  Serious: Yes (Hospitalization, Other)
  Sender: B BRAUN
  Company Number: IE-B.Braun Medical Inc.-2170364

PATIENT
  Age: 83 Year
  Sex: Male

DRUGS (20)
  1. SODIUM CHLORIDE [Suspect]
     Active Substance: SODIUM CHLORIDE
     Indication: Parenteral nutrition
     Dates: start: 20240409
  2. SODIUM CHLORIDE [Suspect]
     Active Substance: SODIUM CHLORIDE
     Indication: Short-bowel syndrome
  3. SYNTHAMIN [Suspect]
     Active Substance: AMINO ACIDS
  4. ASCORBIC ACID [Suspect]
     Active Substance: ASCORBIC ACID
  5. WATER FOR INJECTION [Suspect]
     Active Substance: WATER
  6. SODIUM GLYCEROPHOSPHATE [Suspect]
     Active Substance: SODIUM GLYCEROPHOSPHATE
  7. SODIUM ACETATE [Suspect]
     Active Substance: SODIUM ACETATE
  8. POTASSIUM CHLORIDE [Suspect]
     Active Substance: POTASSIUM CHLORIDE
  9. MAGNESIUM SULFATE [Suspect]
     Active Substance: MAGNESIUM SULFATE
  10. CALCIUM CHLORIDE [Suspect]
     Active Substance: CALCIUM CHLORIDE
  11. ZINC SULFATE [Suspect]
     Active Substance: ZINC SULFATE
  12. SMOFLIPID [Suspect]
     Active Substance: FISH OIL\MEDIUM-CHAIN TRIGLYCERIDES\OLIVE OIL\SOYBEAN OIL
  13. IRON\MINERALS\POTASSIUM IOD\SODIUM FLUORIDE\SODIUM MOLYBDATE\SODIUM SE [Suspect]
     Active Substance: IRON\MINERALS\POTASSIUM IOD\SODIUM FLUORIDE\SODIUM MOLYBDATE\SODIUM SELENITE\ZINC
  14. DEXTROSE [Suspect]
     Active Substance: DEXTROSE MONOHYDRATE
  15. SODIUM CHLORIDE [Suspect]
     Active Substance: SODIUM CHLORIDE
  16. WATER FOR INJECTION [Suspect]
     Active Substance: WATER
  17. CERNEVIT [Suspect]
     Active Substance: VITAMINS
  18. AMINO ACIDS\DEXTROSE\ELECTROLYTES NOS\SOYBEAN OIL [Suspect]
     Active Substance: AMINO ACIDS\DEXTROSE\ELECTROLYTES NOS\SOYBEAN OIL
  19. CERNEVIT [Suspect]
     Active Substance: VITAMINS
  20. WATER FOR INJECTION [Suspect]
     Active Substance: WATER

REACTIONS (19)
  - Hallucination [Unknown]
  - Pustule [Unknown]
  - Feeling hot [Unknown]
  - Erythema [Unknown]
  - Tenderness [Unknown]
  - Blood pressure abnormal [Unknown]
  - Scar inflammation [Unknown]
  - Body temperature abnormal [Unknown]
  - Dyspnoea [Unknown]
  - Fatigue [Unknown]
  - Lethargy [Unknown]
  - Infection [Unknown]
  - General physical health deterioration [Unknown]
  - Drug intolerance [Unknown]
  - Stoma site discharge [Unknown]
  - Haemoglobin abnormal [Unknown]
  - Feeling cold [Unknown]
  - Malaise [Unknown]
  - Body temperature decreased [Unknown]
